FAERS Safety Report 9452341 (Version 1)
Quarter: 2013Q3

REPORT INFORMATION
  Report Type: Spontaneous
  Country: US (occurrence: None)
  Receive Date: 20130808
  Receipt Date: 20130808
  Transmission Date: 20140515
  Serious: Yes (Other)
  Sender: FDA-Public Use
  Company Number: None

PATIENT
  Age: 21 Year
  Sex: Female
  Weight: 52.16 kg

DRUGS (1)
  1. SERTRALINE [Suspect]
     Dosage: 1//2 TB QD ORAL
     Route: 048
     Dates: start: 20130806, end: 20130806

REACTIONS (4)
  - Tremor [None]
  - Palpitations [None]
  - Fatigue [None]
  - Tachycardia [None]
